FAERS Safety Report 25596635 (Version 1)
Quarter: 2025Q3

REPORT INFORMATION
  Report Type: Spontaneous
  Country: US (occurrence: US)
  Receive Date: 20250723
  Receipt Date: 20250723
  Transmission Date: 20251020
  Serious: Yes (Hospitalization, Other)
  Sender: MAYNE
  Company Number: US-MAYNE PHARMA-2025MYN000415

PATIENT
  Age: 41 Year
  Sex: Female

DRUGS (2)
  1. SOLTAMOX [Suspect]
     Active Substance: TAMOXIFEN CITRATE
     Indication: Adjuvant therapy
     Route: 065
     Dates: start: 202312, end: 202407
  2. SOLTAMOX [Suspect]
     Active Substance: TAMOXIFEN CITRATE
     Indication: Breast cancer

REACTIONS (2)
  - Central hypothyroidism [Recovered/Resolved]
  - Cholestatic liver injury [Recovered/Resolved]
